FAERS Safety Report 25089747 (Version 1)
Quarter: 2025Q1

REPORT INFORMATION
  Report Type: Other
  Country: US (occurrence: US)
  Receive Date: 20250318
  Receipt Date: 20250318
  Transmission Date: 20250409
  Serious: Yes (Hospitalization, Other)
  Sender: ALVOGEN
  Company Number: US-ALVOGEN-2025096454

PATIENT
  Age: 44 Year
  Sex: Male

DRUGS (1)
  1. FENTANYL [Suspect]
     Active Substance: FENTANYL
     Indication: Drug abuse
     Route: 048

REACTIONS (9)
  - Empyema [Recovering/Resolving]
  - Pneumonia [Recovering/Resolving]
  - Bronchial obstruction [Recovering/Resolving]
  - Acute respiratory failure [Recovering/Resolving]
  - Atypical pneumonia [Recovering/Resolving]
  - Foreign body aspiration [Unknown]
  - Atelectasis [Recovering/Resolving]
  - Drug abuse [Unknown]
  - Intentional product use issue [Unknown]
